FAERS Safety Report 24990735 (Version 1)
Quarter: 2025Q1

REPORT INFORMATION
  Report Type: Spontaneous
  Country: CN (occurrence: CN)
  Receive Date: 20250220
  Receipt Date: 20250220
  Transmission Date: 20250409
  Serious: Yes (Other)
  Sender: MERCK SHARP & DOHME LLC
  Company Number: CN-009507513-2256500

PATIENT
  Age: 91 Year
  Sex: Female
  Weight: 43 kg

DRUGS (2)
  1. CILASTATIN SODIUM\IMIPENEM [Suspect]
     Active Substance: CILASTATIN SODIUM\IMIPENEM
     Indication: Infection
     Route: 041
     Dates: start: 20250114, end: 20250118
  2. Theophylline sustained-release tablets [Concomitant]
     Indication: Symptomatic treatment
     Route: 048
     Dates: start: 20250115, end: 20250118

REACTIONS (1)
  - Epilepsy [Recovered/Resolved]

NARRATIVE: CASE EVENT DATE: 20250118
